FAERS Safety Report 11467582 (Version 3)
Quarter: 2021Q4

REPORT INFORMATION
  Report Type: Report from Study
  Country: DE (occurrence: DE)
  Receive Date: 20150908
  Receipt Date: 20211117
  Transmission Date: 20220303
  Serious: Yes (Death, Life-Threatening, Other)
  Sender: FDA-Public Use
  Company Number: PHHO2015DE013727

PATIENT
  Sex: Male
  Weight: 50 kg

DRUGS (18)
  1. CYTARABINE [Suspect]
     Active Substance: CYTARABINE
     Indication: Lymphoma
     Dosage: UNK
     Route: 065
     Dates: start: 20150916, end: 20150917
  2. DEXAMETHASONE [Suspect]
     Active Substance: DEXAMETHASONE
     Indication: Lymphoma
     Dosage: UNK
     Route: 065
     Dates: start: 20150916, end: 20150917
  3. CERITINIB [Suspect]
     Active Substance: CERITINIB
     Indication: Anaplastic large-cell lymphoma
     Dosage: 750 MG, UNK
     Route: 048
     Dates: start: 20150821, end: 20150831
  4. BRENTUXIMAB [Suspect]
     Active Substance: BRENTUXIMAB
     Indication: Lymphoma
     Dosage: UNK
     Route: 065
     Dates: start: 20150901, end: 20150901
  5. VINDESINE [Suspect]
     Active Substance: VINDESINE
     Indication: Lymphoma
     Dosage: UNK
     Route: 065
     Dates: start: 20150916, end: 20150916
  6. ALBUMIN HUMAN [Concomitant]
     Active Substance: ALBUMIN HUMAN
     Indication: Blood albumin decreased
     Dosage: 50 ML, TID
     Route: 042
     Dates: start: 20150826
  7. ALBUMIN HUMAN [Concomitant]
     Active Substance: ALBUMIN HUMAN
     Indication: Ascites
  8. LASIX [Concomitant]
     Active Substance: FUROSEMIDE
     Indication: Ascites
     Dosage: 5 MG, TID
     Route: 042
     Dates: start: 20150826
  9. METAMIZOLE [Concomitant]
     Active Substance: METAMIZOLE
     Indication: Pain
     Dosage: 3300 MG, QD
     Route: 042
     Dates: start: 20150819
  10. HYDROMORPHONE [Concomitant]
     Active Substance: HYDROMORPHONE
     Indication: Pain
     Dosage: 40 MG, QD
     Route: 042
     Dates: start: 20150828
  11. VANCOMYCIN [Concomitant]
     Active Substance: VANCOMYCIN
     Indication: Pyrexia
     Dosage: 800 MG, BID
     Route: 042
     Dates: start: 20150827
  12. MEROPENEM [Concomitant]
     Active Substance: MEROPENEM
     Indication: Infection
     Dosage: 1300 MG, TID
     Route: 042
     Dates: start: 20150810
  13. CLONT [Concomitant]
     Indication: Prophylaxis
     Dosage: 500 MG, TID
     Route: 042
     Dates: start: 20150810
  14. AMBISOME [Concomitant]
     Active Substance: AMPHOTERICIN B
     Indication: Prophylaxis
     Dosage: 50 MG, QD
     Route: 042
     Dates: start: 20150821
  15. DIMENHYDRINATE [Concomitant]
     Active Substance: DIMENHYDRINATE
     Indication: Vomiting
     Dosage: 124 MG, QD
     Route: 042
     Dates: start: 20150819
  16. GRANISETRON HYDROCHLORIDE [Concomitant]
     Active Substance: GRANISETRON HYDROCHLORIDE
     Indication: Vomiting
     Dosage: 3 MG, TID
     Route: 042
     Dates: start: 20150817
  17. GRANISETRON HYDROCHLORIDE [Concomitant]
     Active Substance: GRANISETRON HYDROCHLORIDE
     Indication: Nausea
  18. FLUTICASONE PROPIONATE [Concomitant]
     Active Substance: FLUTICASONE PROPIONATE
     Indication: Dyspnoea
     Dosage: 2H BID
     Route: 042
     Dates: start: 20150820

REACTIONS (2)
  - Sepsis [Fatal]
  - Subileus [Not Recovered/Not Resolved]

NARRATIVE: CASE EVENT DATE: 20150829
